FAERS Safety Report 7197741-2 (Version None)
Quarter: 2010Q4

REPORT INFORMATION
  Report Type: 
  Country: None (occurrence: None)
  Receive Date: 20101214
  Receipt Date: 20101207
  Transmission Date: 20110411
  Serious: Yes (Other)
  Sender: FDA-Public Use
  Company Number: 2010SP063564

PATIENT
  Sex: Male

DRUGS (1)
  1. DULERA TABLET [Suspect]
     Indication: PRODUCT USED FOR UNKNOWN INDICATION
     Dosage: INH
     Route: 055
     Dates: start: 20101101

REACTIONS (1)
  - HALLUCINATION, VISUAL [None]
